FAERS Safety Report 21635731 (Version 1)
Quarter: 2022Q4

REPORT INFORMATION
  Report Type: Spontaneous
  Country: None (occurrence: US)
  Receive Date: 20221123
  Receipt Date: 20221123
  Transmission Date: 20230113
  Serious: Yes (Other)
  Sender: FDA-Public Use
  Company Number: US-Allermed Laboratories, Inc.-2135212

PATIENT
  Age: 12 Year
  Sex: Female
  Weight: 37.273 kg

DRUGS (3)
  1. STANDARDIZED BERMUDA GRASS [Suspect]
     Active Substance: CYNODON DACTYLON POLLEN
     Indication: Rhinitis allergic
     Route: 023
     Dates: start: 20221026, end: 20221026
  2. STANDARDIZED MITE DERMATOPHAGOIDES FARINAE [Suspect]
     Active Substance: DERMATOPHAGOIDES FARINAE
     Route: 023
     Dates: start: 20221026, end: 20221026
  3. STANDARDIZED MITE DERMATOPHAGOIDES FARINAE [Suspect]
     Active Substance: DERMATOPHAGOIDES FARINAE
     Route: 023
     Dates: start: 20221026, end: 20221026

REACTIONS (1)
  - Anaphylactic reaction [Recovered/Resolved]

NARRATIVE: CASE EVENT DATE: 20221026
